FAERS Safety Report 15040779 (Version 1)
Quarter: 2018Q2

REPORT INFORMATION
  Report Type: Spontaneous
  Country: US (occurrence: US)
  Receive Date: 20180530
  Receipt Date: 20180530
  Transmission Date: 20180711
  Serious: No
  Sender: FDA-Public Use
  Company Number: None

PATIENT
  Age: 28 Year
  Sex: Female
  Weight: 78.47 kg

DRUGS (1)
  1. NUVARING [Suspect]
     Active Substance: ETHINYL ESTRADIOL\ETONOGESTREL
     Indication: CONTRACEPTION
     Route: 067
     Dates: start: 20120402, end: 20171017

REACTIONS (5)
  - Vulvovaginal discomfort [None]
  - Dyspareunia [None]
  - Inadequate lubrication [None]
  - Loss of libido [None]
  - Vulvovaginal dryness [None]

NARRATIVE: CASE EVENT DATE: 20160613
